FAERS Safety Report 17460912 (Version 1)
Quarter: 2020Q1

REPORT INFORMATION
  Report Type: Spontaneous
  Country: US (occurrence: US)
  Receive Date: 20200213
  Receipt Date: 20200213
  Transmission Date: 20200409
  Serious: No
  Sender: FDA-Public Use
  Company Number: None

PATIENT
  Sex: Male

DRUGS (1)
  1. SILIQ [Suspect]
     Active Substance: BRODALUMAB
     Indication: PSORIATIC ARTHROPATHY
     Dosage: ?          OTHER STRENGTH:210MG/1.5M;OTHER DOSE:1 SYRINGE;OTHER FREQUENCY:EVERY 2 WEEKS;?
     Route: 058
     Dates: start: 20200212

REACTIONS (1)
  - Fungal infection [None]
